FAERS Safety Report 5263394-3 (Version None)
Quarter: 2007Q1

REPORT INFORMATION
  Report Type: 
  Country: None (occurrence: None)
  Receive Date: 20070313
  Receipt Date: 20070309
  Transmission Date: 20070707
  Serious: Yes (Life-Threatening, Hospitalization)
  Sender: FDA-Public Use
  Company Number: PHBS2007JP01978

PATIENT
  Age: 66 Year
  Sex: Female

DRUGS (5)
  1. DIOVAN [Suspect]
     Dosage: 160 MG/DAY
     Route: 048
     Dates: start: 20050819
  2. IFENPRODIL TARTRATE [Concomitant]
     Dosage: 60 MG, UNK
     Route: 048
  3. LIPITOR [Concomitant]
     Dosage: 10 MG, UNK
     Route: 048
  4. AMLODIPINE BESYLATE [Concomitant]
     Dosage: 60 MG, UNK
     Route: 048
  5. GASTER D [Concomitant]
     Dosage: 20 MG, UNK
     Route: 048

REACTIONS (4)
  - AORTIC DISSECTION [None]
  - CARDIAC FAILURE [None]
  - COMPUTERISED TOMOGRAM ABNORMAL [None]
  - THROMBOSIS [None]
